FAERS Safety Report 6723969-9 (Version None)
Quarter: 2010Q2

REPORT INFORMATION
  Report Type: 
  Country: None (occurrence: None)
  Receive Date: 20100513
  Receipt Date: 20100421
  Transmission Date: 20101027
  Serious: Yes (Hospitalization, Other)
  Sender: FDA-Public Use
  Company Number: US-ROCHE-681196

PATIENT
  Age: 51 Year
  Sex: Male

DRUGS (2)
  1. TAMIFLU [Suspect]
     Route: 048
     Dates: start: 20091207, end: 20091211
  2. TAMIFLU [Suspect]
     Route: 048
     Dates: start: 20100106, end: 20100110

REACTIONS (2)
  - INFLUENZA [None]
  - PATHOGEN RESISTANCE [None]
